FAERS Safety Report 25691446 (Version 2)
Quarter: 2025Q3

REPORT INFORMATION
  Report Type: Spontaneous
  Country: EU (occurrence: EU)
  Receive Date: 20250818
  Receipt Date: 20250826
  Transmission Date: 20251020
  Serious: Yes (Disabling)
  Sender: TEVA
  Company Number: EU-BIOGARAN-B25001463

PATIENT
  Age: 74 Year
  Sex: Female

DRUGS (3)
  1. LEVOFLOXACIN [Suspect]
     Active Substance: LEVOFLOXACIN
     Indication: Sinusitis
     Dosage: BIOGARAN 500 MG FILM-COATED SCORED TABLET (1 TABLET FOR 7 DAYS BY ORAL ROUTE)
     Route: 048
     Dates: start: 20250730, end: 202508
  2. Temesta [Concomitant]
     Indication: Depression
     Route: 065
  3. QUETIAPINE [Concomitant]
     Active Substance: QUETIAPINE
     Indication: Depression
     Route: 065

REACTIONS (7)
  - Muscle spasms [Recovered/Resolved]
  - Anxiety [Not Recovered/Not Resolved]
  - Product prescribing issue [Unknown]
  - Eye pain [Not Recovered/Not Resolved]
  - Intentional product misuse [Unknown]
  - Pain in extremity [Recovered/Resolved]
  - Therapy cessation [Unknown]

NARRATIVE: CASE EVENT DATE: 20250101
